FAERS Safety Report 5687955-2 (Version None)
Quarter: 2008Q1

REPORT INFORMATION
  Report Type: 
  Country: None (occurrence: None)
  Receive Date: 20080328
  Receipt Date: 20061020
  Transmission Date: 20080703
  Serious: No
  Sender: FDA-Public Use
  Company Number: US-BAYER-US-2006-032345

PATIENT
  Age: 29 Year
  Sex: Female

DRUGS (3)
  1. MIRENA [Suspect]
     Indication: CONTRACEPTION
     Route: 015
     Dates: start: 20060801, end: 20060901
  2. SYNTHROID [Concomitant]
     Route: 048
  3. IRON [Concomitant]

REACTIONS (2)
  - IUCD COMPLICATION [None]
  - PELVIC PAIN [None]
